FAERS Safety Report 8081948-6 (Version None)
Quarter: 2012Q1

REPORT INFORMATION
  Report Type: 
  Country: None (occurrence: None)
  Receive Date: 20120130
  Receipt Date: 20110222
  Transmission Date: 20120608
  Serious: No
  Sender: FDA-Public Use
  Company Number: US-ABBOTT-11P-163-0707361-00

PATIENT
  Sex: Male
  Weight: 79.45 kg

DRUGS (5)
  1. LUPRON DEPOT [Suspect]
     Indication: PROSTATIC SPECIFIC ANTIGEN INCREASED
     Dates: start: 20070101, end: 20070101
  2. ASPIRIN [Concomitant]
     Indication: PRODUCT USED FOR UNKNOWN INDICATION
  3. PREDNISONE TAB [Concomitant]
     Indication: PROSTATE CANCER
     Dates: start: 20100601
  4. CASODEX [Concomitant]
     Indication: PROSTATE CANCER
     Dates: start: 20100601
  5. LUPRON DEPOT [Suspect]
     Dates: start: 20100601

REACTIONS (1)
  - INJECTION SITE PAIN [None]
